FAERS Safety Report 18359343 (Version 1)
Quarter: 2020Q4

REPORT INFORMATION
  Report Type: Spontaneous
  Country: US (occurrence: US)
  Receive Date: 20201007
  Receipt Date: 20201007
  Transmission Date: 20210114
  Serious: No
  Sender: FDA-Public Use
  Company Number: None

PATIENT
  Age: 23 Year
  Sex: Female

DRUGS (1)
  1. COSENTYX [Suspect]
     Active Substance: SECUKINUMAB
     Indication: PSORIASIS
     Dosage: DOSE: 300MG ( PENS)?FREQUENCY: EVERY 4
     Route: 058
     Dates: start: 201909

REACTIONS (3)
  - Nasopharyngitis [None]
  - Therapy interrupted [None]
  - Infection [None]
